FAERS Safety Report 9240790 (Version 1)
Quarter: 2013Q1

REPORT INFORMATION
  Report Type: Spontaneous
  Country: US (occurrence: None)
  Receive Date: 20121120
  Receipt Date: 20121120
  Transmission Date: 20140127
  Serious: No
  Sender: FDA-Public Use
  Company Number: 1000037647

PATIENT
  Age: 60 Year
  Sex: Female

DRUGS (8)
  1. VIIBRYD [Suspect]
     Indication: DEPRESSION
     Route: 048
     Dates: start: 20120726, end: 20120801
  2. LEVOTHYROXINE (LEVOTHYROXINE SODIUM) [Concomitant]
  3. DILTIAZEM [Concomitant]
  4. CARAFATE (SUCRALFATE) [Concomitant]
  5. HYDROCODONE (HYDROCODONE) [Concomitant]
  6. VITAMIN D (VITAMIN D) [Concomitant]
  7. ASPIRIN (ACETYLSALICYLIC ACID) [Concomitant]
  8. COLACE (DOCUSATE SODIUM) [Concomitant]

REACTIONS (3)
  - Diarrhoea [None]
  - Musculoskeletal stiffness [None]
  - Pain [None]
